FAERS Safety Report 11083514 (Version 2)
Quarter: 2015Q2

REPORT INFORMATION
  Report Type: Spontaneous
  Country: US (occurrence: US)
  Receive Date: 20150501
  Receipt Date: 20150504
  Transmission Date: 20150821
  Serious: Yes (Other)
  Sender: FDA-Public Use
  Company Number: US-PFIZER INC-2015140825

PATIENT
  Sex: Female

DRUGS (1)
  1. ADVIL [Suspect]
     Active Substance: IBUPROFEN
     Dosage: 200 MG, UNK

REACTIONS (6)
  - Oropharyngeal pain [Unknown]
  - Dysphagia [Unknown]
  - Ear discomfort [Unknown]
  - Foreign body [Unknown]
  - Loss of consciousness [Recovered/Resolved]
  - Throat irritation [Unknown]

NARRATIVE: CASE EVENT DATE: 20150420
